FAERS Safety Report 18119915 (Version 1)
Quarter: 2020Q3

REPORT INFORMATION
  Report Type: Spontaneous
  Country: US (occurrence: US)
  Receive Date: 20200806
  Receipt Date: 20200806
  Transmission Date: 20201103
  Serious: Yes (Other)
  Sender: FDA-Public Use
  Company Number: US-GLAXOSMITHKLINE-US2020GSK142669

PATIENT
  Age: 14 Year
  Sex: Male

DRUGS (6)
  1. CIDOFOVIR. [Suspect]
     Active Substance: CIDOFOVIR
     Indication: HERPES SIMPLEX
     Dosage: UNK
     Route: 061
  2. TRIMETHOPRIM?SULFAMETHOXAZOLE [Concomitant]
     Active Substance: SULFAMETHOXAZOLE\TRIMETHOPRIM
     Indication: PROPHYLAXIS
     Dosage: UNK
  3. ACYCLOVIR. [Suspect]
     Active Substance: ACYCLOVIR
     Indication: HERPES SIMPLEX
     Dosage: UNK
     Route: 042
  4. ACYCLOVIR. [Suspect]
     Active Substance: ACYCLOVIR
     Dosage: UNK
     Route: 048
  5. CIDOFOVIR. [Suspect]
     Active Substance: CIDOFOVIR
     Indication: HERPES SIMPLEX
     Dosage: UNK
  6. FOSCARNET [Suspect]
     Active Substance: FOSCARNET
     Indication: HERPES SIMPLEX
     Dosage: UNK
     Route: 042

REACTIONS (10)
  - Pathogen resistance [Unknown]
  - Staphylococcal infection [Unknown]
  - Viral mutation identified [Unknown]
  - Skin disorder [Unknown]
  - Candida infection [Unknown]
  - JC virus infection [Unknown]
  - Herpes simplex [Unknown]
  - Skin plaque [Unknown]
  - Eye disorder [Unknown]
  - Papule [Unknown]
